FAERS Safety Report 18867282 (Version 1)
Quarter: 2021Q1

REPORT INFORMATION
  Report Type: Spontaneous
  Country: CN (occurrence: CN)
  Receive Date: 20210209
  Receipt Date: 20210209
  Transmission Date: 20210420
  Serious: Yes (Hospitalization)
  Sender: FDA-Public Use
  Company Number: CN-PFIZER INC-2021086737

PATIENT
  Age: 6 Week
  Sex: Female
  Weight: 1.57 kg

DRUGS (4)
  1. LINEZOLID. [Suspect]
     Active Substance: LINEZOLID
     Indication: SEPSIS
     Dosage: 0.015 G, THREE TIMES A DAY (TID)
     Route: 041
     Dates: start: 20210112
  2. LINEZOLID. [Suspect]
     Active Substance: LINEZOLID
     Dosage: 0.015 G, TWICE A DAY (BID),
     Route: 041
     Dates: end: 20210114
  3. LINEZOLID. [Suspect]
     Active Substance: LINEZOLID
     Dosage: 0.015 G, THREE TIMES A DAY (TID)
     Route: 041
     Dates: start: 20210115, end: 20210115
  4. LINEZOLID. [Suspect]
     Active Substance: LINEZOLID
     Dosage: 0.015 G, TWICE A DAY (BID),
     Route: 041
     Dates: start: 20210116, end: 20210127

REACTIONS (5)
  - Platelet count decreased [Recovered/Resolved]
  - Hypertension [Recovered/Resolved]
  - Hepatic function abnormal [Recovered/Resolved]
  - Off label use [Unknown]
  - Myocardial necrosis marker increased [Recovered/Resolved]

NARRATIVE: CASE EVENT DATE: 20210112
